FAERS Safety Report 10517405 (Version 1)
Quarter: 2014Q4

REPORT INFORMATION
  Report Type: Spontaneous
  Country: US (occurrence: None)
  Receive Date: 20141003
  Receipt Date: 20141003
  Transmission Date: 20150528
  Serious: Yes (Other)
  Sender: FDA-Public Use
  Company Number: 2013-19453

PATIENT
  Sex: Female

DRUGS (4)
  1. ALENDRONATE SODIUM (WATSON LABORATORIES) (ALENDRONATE SODIUM ) UNK, UNKUNK [Suspect]
     Active Substance: ALENDRONATE SODIUM
     Indication: OSTEOPOROSIS PROPHYLAXIS
     Dosage: ^AS PRESCRIBED AND IN A FORESEEABLE MANNER^, ORAL
  2. ALENDRONATE SODIUM (WATSON LABORATORIES) (ALENDRONATE SODIUM ) UNK, UNKUNK [Suspect]
     Active Substance: ALENDRONATE SODIUM
     Indication: OSTEOPOROSIS
     Dosage: ^AS PRESCRIBED AND IN A FORESEEABLE MANNER^, ORAL
  3. FOSAMAX [Suspect]
     Active Substance: ALENDRONATE SODIUM
     Indication: OSTEOPOROSIS
     Dosage: ^AS PRESCRIBED AND IN A FORESEEABLE MANNER^, ORAL
  4. FOSAMAX [Suspect]
     Active Substance: ALENDRONATE SODIUM
     Indication: OSTEOPOROSIS PROPHYLAXIS
     Dosage: ^AS PRESCRIBED AND IN A FORESEEABLE MANNER^, ORAL

REACTIONS (2)
  - Femur fracture [None]
  - Incorrect drug administration duration [None]
